FAERS Safety Report 24545803 (Version 2)
Quarter: 2024Q4

REPORT INFORMATION
  Report Type: Spontaneous
  Country: ES (occurrence: ES)
  Receive Date: 20241024
  Receipt Date: 20241028
  Transmission Date: 20250115
  Serious: Yes (Hospitalization, Other)
  Sender: PFIZER
  Company Number: None

PATIENT
  Age: 13 Year
  Sex: Male

DRUGS (8)
  1. METHOTREXATE SODIUM [Suspect]
     Active Substance: METHOTREXATE SODIUM
     Indication: Stem cell transplant
     Dosage: UNK
     Dates: start: 2006
  2. FLUCONAZOLE [Suspect]
     Active Substance: FLUCONAZOLE
     Indication: Antifungal prophylaxis
     Dosage: 6 MG/KG, DAILY
     Route: 042
  3. BUSULFAN [Suspect]
     Active Substance: BUSULFAN
     Indication: Stem cell transplant
     Dosage: 3.8 MG/KG, 1X/DAY
     Route: 042
     Dates: start: 2006
  4. CYCLOSPORINE [Suspect]
     Active Substance: CYCLOSPORINE
     Indication: Stem cell transplant
     Dosage: UNK
     Dates: start: 200611
  5. CYCLOPHOSPHAMIDE [Suspect]
     Active Substance: CYCLOPHOSPHAMIDE
     Indication: Stem cell transplant
     Dosage: 100 MG/M2, 1X/DAY
     Dates: start: 2006
  6. CYCLOPHOSPHAMIDE [Suspect]
     Active Substance: CYCLOPHOSPHAMIDE
     Indication: Stem cell transplant
     Dosage: 60 MG/KG, 1X/DAY
  7. FLUDARABINE [Suspect]
     Active Substance: FLUDARABINE PHOSPHATE
     Indication: Stem cell transplant
     Dosage: 75 MG/M2, 1X/DAY (ONCE/SINGLE)
     Dates: start: 2006
  8. MYCOPHENOLATE MOFETIL [Suspect]
     Active Substance: MYCOPHENOLATE MOFETIL
     Indication: Stem cell transplant
     Dosage: UNK
     Dates: start: 2006

REACTIONS (27)
  - Renal disorder [Recovered/Resolved]
  - Pyelocaliectasis [Recovered/Resolved]
  - Bladder mass [Unknown]
  - Hypertension [Recovered/Resolved]
  - Leukoencephalopathy [Recovered/Resolved]
  - Lung infiltration [Recovered/Resolved]
  - Pain [Recovered/Resolved]
  - C-reactive protein increased [Unknown]
  - Ureteric dilatation [Recovered/Resolved]
  - Acute graft versus host disease [Not Recovered/Not Resolved]
  - Transplant failure [Recovered/Resolved]
  - Palatal disorder [Recovered/Resolved]
  - Cystitis haemorrhagic [Recovered/Resolved]
  - Bladder hypertrophy [Recovered/Resolved]
  - Back pain [Recovered/Resolved]
  - Chronic graft versus host disease [Not Recovered/Not Resolved]
  - Respiratory failure [Recovered/Resolved]
  - Dysuria [Recovered/Resolved]
  - Pyrexia [Recovered/Resolved]
  - Disseminated aspergillosis [Recovered/Resolved]
  - Haematuria [Recovered/Resolved]
  - Candida infection [Recovered/Resolved]
  - Diarrhoea [Recovered/Resolved]
  - Salmonellosis [Recovered/Resolved]
  - Enterococcal bacteraemia [Recovered/Resolved]
  - Human polyomavirus infection [Recovered/Resolved]
  - Cytomegalovirus chorioretinitis [Recovered/Resolved]

NARRATIVE: CASE EVENT DATE: 20060101
